FAERS Safety Report 4624229-2 (Version None)
Quarter: 2005Q1

REPORT INFORMATION
  Report Type: 
  Country: None (occurrence: None)
  Receive Date: 20050330
  Receipt Date: 20050330
  Transmission Date: 20050727
  Serious: No
  Sender: FDA-Public Use
  Company Number: None

PATIENT
  Age: 32 Year
  Sex: Female

DRUGS (2)
  1. PROPRANOLOL [Suspect]
     Indication: ATRIAL FLUTTER
     Dosage: 80MG PO 4XD
     Route: 048
  2. PROPRANOLOL [Suspect]
     Indication: HYPERTHYROIDISM
     Dosage: 80MG PO 4XD
     Route: 048

REACTIONS (4)
  - BLOOD PRESSURE DECREASED [None]
  - BRADYCARDIA [None]
  - HEART RATE INCREASED [None]
  - HYPERTHYROIDISM [None]
